FAERS Safety Report 7604914-0 (Version None)
Quarter: 2011Q3

REPORT INFORMATION
  Report Type: 
  Country: None (occurrence: None)
  Receive Date: 20110712
  Receipt Date: 20110629
  Transmission Date: 20111222
  Serious: Yes (Death)
  Sender: FDA-Public Use
  Company Number: AU-MYLANLABS-2011S1013785

PATIENT
  Age: 30 Year

DRUGS (6)
  1. DIAZEPAM [Suspect]
     Route: 065
  2. NORDAZEPAM [Suspect]
     Route: 065
  3. METHADONE HCL [Suspect]
     Route: 065
  4. BUPRENORPHINE [Suspect]
     Route: 065
  5. OXYCODONE HCL [Suspect]
     Route: 065
  6. METHAMPHETAMINE HYDROCHLORIDE [Suspect]
     Route: 065

REACTIONS (6)
  - CORONARY ARTERY DISEASE [None]
  - ARRHYTHMIA [None]
  - PULMONARY CONGESTION [None]
  - PULMONARY OEDEMA [None]
  - MYOCARDIAL ISCHAEMIA [None]
  - TOXICITY TO VARIOUS AGENTS [None]
